FAERS Safety Report 4317059-2 (Version None)
Quarter: 2004Q1

REPORT INFORMATION
  Report Type: 
  Country: None (occurrence: None)
  Receive Date: 20040312
  Receipt Date: 20040305
  Transmission Date: 20041129
  Serious: Yes (Hospitalization, Other)
  Sender: FDA-Public Use
  Company Number: 2004202361US

PATIENT
  Age: 84 Year
  Sex: Female

DRUGS (3)
  1. CELEBREX [Suspect]
     Indication: ARTHRITIS
     Dates: end: 20020101
  2. PREMARIN [Concomitant]
  3. ALEVE [Concomitant]

REACTIONS (6)
  - ABDOMINAL PAIN UPPER [None]
  - CHOLECYSTECTOMY [None]
  - DIARRHOEA [None]
  - GALLBLADDER PAIN [None]
  - PANCREATIC ENZYME ABNORMALITY [None]
  - RECTAL HAEMORRHAGE [None]
